FAERS Safety Report 5256711-1 (Version None)
Quarter: 2007Q1

REPORT INFORMATION
  Report Type: 
  Country: None (occurrence: None)
  Receive Date: 20070306
  Receipt Date: 20070226
  Transmission Date: 20070707
  Serious: Yes (Other)
  Sender: FDA-Public Use
  Company Number: US-ELI_LILLY_AND_COMPANY-US200702005236

PATIENT
  Sex: Female

DRUGS (9)
  1. HUMULIN 70/30 [Suspect]
     Indication: DIABETES MELLITUS NON-INSULIN-DEPENDENT
  2. HYDRALAZINE HCL [Concomitant]
     Indication: BLOOD PRESSURE
  3. LEVATOL [Concomitant]
     Indication: BLOOD PRESSURE
  4. TEVETEN [Concomitant]
     Indication: BLOOD PRESSURE
  5. CELEXA [Concomitant]
  6. NORVASC [Concomitant]
  7. LOZOL [Concomitant]
  8. CLONIDINE [Concomitant]
  9. LIPITOR [Concomitant]

REACTIONS (5)
  - CATARACT [None]
  - CEREBROVASCULAR ACCIDENT [None]
  - HEADACHE [None]
  - INFLUENZA [None]
  - VISUAL ACUITY REDUCED [None]
